FAERS Safety Report 18286580 (Version 2)
Quarter: 2021Q2

REPORT INFORMATION
  Report Type: Spontaneous
  Country: FR (occurrence: FR)
  Receive Date: 20200920
  Receipt Date: 20210629
  Transmission Date: 20210717
  Serious: Yes (Congenital Anomaly)
  Sender: FDA-Public Use
  Company Number: FR-ROCHE-2675063

PATIENT
  Age: 38 Week
  Sex: Male

DRUGS (8)
  1. DEPAKINE CHRONO [Suspect]
     Active Substance: VALPROATE SODIUM
     Dosage: MATERNAL DOSE: 1000 MG DAILY
     Route: 064
     Dates: start: 19920405, end: 19920405
  2. CLONAZEPAM. [Suspect]
     Active Substance: CLONAZEPAM
     Indication: PRODUCT USED FOR UNKNOWN INDICATION
     Dosage: MATERNAL DOSE: 4 DF
     Route: 064
  3. DEPAKINE CHRONO [Suspect]
     Active Substance: VALPROATE SODIUM
     Route: 064
     Dates: start: 19920103, end: 19920404
  4. DEPAKINE CHRONO [Suspect]
     Active Substance: VALPROATE SODIUM
     Route: 064
     Dates: start: 19910710, end: 19910909
  5. DEPAKINE CHRONO [Suspect]
     Active Substance: VALPROATE SODIUM
     Dosage: MATERNAL DOSE: 1000 MG DAILY
     Route: 064
     Dates: start: 19910910, end: 19911009
  6. SPECIAFOLDINE [Concomitant]
     Active Substance: FOLIC ACID
     Dosage: 1 DF
     Route: 064
  7. DEPAKINE CHRONO [Suspect]
     Active Substance: VALPROATE SODIUM
     Indication: PRODUCT USED FOR UNKNOWN INDICATION
     Dosage: MATERNAL DOSE: 1000 MG DAILY
     Route: 064
     Dates: start: 19911205, end: 19920102
  8. DEPAKINE CHRONO [Suspect]
     Active Substance: VALPROATE SODIUM
     Route: 064
     Dates: start: 19911010, end: 19911204

REACTIONS (17)
  - Anxiety [Unknown]
  - Dysmorphism [Unknown]
  - Bronchitis [Unknown]
  - Hypertonia [Unknown]
  - Heart disease congenital [Unknown]
  - Memory impairment [Unknown]
  - Behaviour disorder [Unknown]
  - Language disorder [Unknown]
  - Ear infection [Unknown]
  - Rhinitis [Unknown]
  - Learning disorder [Unknown]
  - Foetal anticonvulsant syndrome [Unknown]
  - Spine malformation [Unknown]
  - Disturbance in attention [Unknown]
  - Foetal exposure during pregnancy [Unknown]
  - Attention deficit hyperactivity disorder [Unknown]
  - Speech disorder developmental [Unknown]

NARRATIVE: CASE EVENT DATE: 19920405
